FAERS Safety Report 6194771-4 (Version None)
Quarter: 2009Q2

REPORT INFORMATION
  Report Type: 
  Country: None (occurrence: None)
  Receive Date: 20090519
  Receipt Date: 20080109
  Transmission Date: 20091009
  Serious: Yes (Other)
  Sender: FDA-Public Use
  Company Number: US-ASTRAZENECA-2006UW24784

PATIENT
  Age: 15740 Day
  Sex: Male
  Weight: 95.3 kg

DRUGS (23)
  1. SEROQUEL [Suspect]
     Indication: DEPRESSION
     Route: 048
     Dates: start: 20030122, end: 20030220
  2. SEROQUEL [Suspect]
     Indication: BIPOLAR DISORDER
     Route: 048
     Dates: start: 20030122, end: 20030220
  3. SEROQUEL [Suspect]
     Route: 048
     Dates: start: 20040101
  4. SEROQUEL [Suspect]
     Route: 048
     Dates: start: 20040101
  5. AMBIEN [Concomitant]
     Route: 048
  6. WELLBUTRIN [Concomitant]
     Route: 065
  7. REMERON [Concomitant]
     Route: 065
  8. PAXIL [Concomitant]
     Route: 065
  9. NOVOLOG [Concomitant]
     Route: 065
  10. LANTUS [Concomitant]
     Route: 065
  11. COUMADIN [Concomitant]
     Route: 048
  12. DIGOXIN [Concomitant]
     Route: 048
  13. POTASSIUM CHLORIDE [Concomitant]
     Route: 065
  14. RANITIDINE [Concomitant]
     Route: 048
  15. LIPITOR [Concomitant]
     Route: 048
  16. LASIX [Concomitant]
     Route: 065
  17. METOPROLOL [Concomitant]
     Route: 048
  18. MONOPRIL [Concomitant]
     Route: 065
  19. GLUCOTROL [Concomitant]
     Route: 048
  20. GLUCOPHAGE [Concomitant]
     Route: 048
  21. NITROSTAT [Concomitant]
     Route: 065
  22. ALBUTEROL [Concomitant]
     Route: 065
  23. ACETAMINOPHEN [Concomitant]
     Route: 048

REACTIONS (8)
  - ACUTE SINUSITIS [None]
  - BLOOD TRIGLYCERIDES INCREASED [None]
  - CHEST PAIN [None]
  - DIABETES MELLITUS [None]
  - MUSCULOSKELETAL PAIN [None]
  - ROTATOR CUFF SYNDROME [None]
  - SLEEP APNOEA SYNDROME [None]
  - TYPE 2 DIABETES MELLITUS [None]
